FAERS Safety Report 6463878-6 (Version None)
Quarter: 2009Q4

REPORT INFORMATION
  Report Type: 
  Country: None (occurrence: None)
  Receive Date: 20091201
  Receipt Date: 20091120
  Transmission Date: 20100525
  Serious: Yes (Death)
  Sender: FDA-Public Use
  Company Number: SE-ROCHE-670024

PATIENT
  Age: 71 Year
  Sex: Female

DRUGS (2)
  1. TAMIFLU [Suspect]
     Indication: INFLUENZA
     Route: 065
  2. ANTIBIOTIC NOS [Concomitant]

REACTIONS (2)
  - INFLUENZA [None]
  - PNEUMONIA [None]
